FAERS Safety Report 9242378 (Version 2)
Quarter: 2013Q2

REPORT INFORMATION
  Report Type: Spontaneous
  Country: US (occurrence: US)
  Receive Date: 20130419
  Receipt Date: 20130507
  Transmission Date: 20140414
  Serious: Yes (Hospitalization, Congenital Anomaly, Other)
  Sender: FDA-Public Use
  Company Number: US-JNJFOC-20130310423

PATIENT
  Age: 0 None
  Sex: Male

DRUGS (12)
  1. TOPAMAX [Suspect]
     Indication: FOETAL EXPOSURE DURING PREGNANCY
     Route: 064
  2. KEPPRA [Suspect]
     Indication: FOETAL EXPOSURE DURING PREGNANCY
     Route: 064
  3. AMOXICILLIN [Suspect]
     Indication: FOETAL EXPOSURE DURING PREGNANCY
     Route: 064
  4. NITROFURANTOIN [Suspect]
     Indication: FOETAL EXPOSURE DURING PREGNANCY
     Route: 064
  5. HYDROCODONE [Suspect]
     Indication: FOETAL EXPOSURE DURING PREGNANCY
     Route: 064
  6. DOCQLACE [Suspect]
     Indication: FOETAL EXPOSURE DURING PREGNANCY
     Route: 064
  7. CLONAZEPAM [Suspect]
     Indication: FOETAL EXPOSURE DURING PREGNANCY
     Route: 064
  8. LOPERAMIDE [Suspect]
     Indication: FOETAL EXPOSURE DURING PREGNANCY
     Route: 064
  9. ACETAMINOPHEN/CODEINE [Suspect]
     Indication: FOETAL EXPOSURE DURING PREGNANCY
     Route: 064
  10. MEPHYTON [Concomitant]
     Indication: FOETAL EXPOSURE DURING PREGNANCY
     Route: 064
  11. FOLIC ACID [Concomitant]
     Indication: FOETAL EXPOSURE DURING PREGNANCY
     Route: 064
  12. PRENATAL VITAMINS [Concomitant]
     Indication: FOETAL EXPOSURE DURING PREGNANCY
     Route: 064

REACTIONS (14)
  - Otitis media chronic [Unknown]
  - Conductive deafness [Unknown]
  - Cleft lip and palate [Recovering/Resolving]
  - Respiratory distress [Recovered/Resolved]
  - Hearing impaired [Unknown]
  - Hypotonia [Recovering/Resolving]
  - Metabolic acidosis [Unknown]
  - Developmental delay [Unknown]
  - Eye disorder [Unknown]
  - Nose deformity [Unknown]
  - Congenital foot malformation [Unknown]
  - Emotional disorder [Unknown]
  - Patent ductus arteriosus [Unknown]
  - Eustachian tube dysfunction [Unknown]
